FAERS Safety Report 23320902 (Version 4)
Quarter: 2024Q4

REPORT INFORMATION
  Report Type: Report from Study
  Country: US (occurrence: US)
  Receive Date: 20231220
  Receipt Date: 20241108
  Transmission Date: 20250115
  Serious: No
  Sender: AGIOS PHARMACEUTICALS
  Company Number: US-AGIOS-2312US03575

PATIENT
  Sex: Female
  Weight: 70 kg

DRUGS (1)
  1. MITAPIVAT [Suspect]
     Active Substance: MITAPIVAT
     Indication: Pyruvate kinase deficiency anaemia
     Dosage: 50 MILLIGRAM, BID
     Route: 048
     Dates: start: 20231122

REACTIONS (3)
  - Haemoglobin decreased [Recovered/Resolved]
  - Cardiac valve disease [Unknown]
  - Renal disorder [Recovered/Resolved]
